FAERS Safety Report 16129367 (Version 6)
Quarter: 2019Q3

REPORT INFORMATION
  Report Type: Spontaneous
  Country: US (occurrence: US)
  Receive Date: 20190328
  Receipt Date: 20190805
  Transmission Date: 20191004
  Serious: Yes (Congenital Anomaly, Other)
  Sender: FDA-Public Use
  Company Number: PHEH2019US013624

PATIENT
  Sex: Male

DRUGS (3)
  1. ZOFRAN [Suspect]
     Active Substance: ONDANSETRON HYDROCHLORIDE
     Indication: FOETAL EXPOSURE DURING PREGNANCY
     Dosage: MOTHER DOSE: 04 MG, PRN
     Route: 064
  2. ZOFRAN [Suspect]
     Active Substance: ONDANSETRON HYDROCHLORIDE
     Indication: FOETAL EXPOSURE DURING PREGNANCY
     Dosage: MOTHER DOSE: 04 MG, PRN
     Route: 064
  3. ZOFRAN [Suspect]
     Active Substance: ONDANSETRON HYDROCHLORIDE
     Indication: FOETAL EXPOSURE DURING PREGNANCY
     Dosage: MOTHER DOSE: 04 MG, PRN
     Route: 064

REACTIONS (63)
  - Trisomy 21 [Unknown]
  - Aorta hypoplasia [Unknown]
  - Coarctation of the aorta [Unknown]
  - Mitral valve incompetence [Unknown]
  - Ear infection [Unknown]
  - Middle ear effusion [Unknown]
  - Ear pain [Unknown]
  - Chronic obstructive pulmonary disease [Unknown]
  - Snoring [Unknown]
  - Conduction disorder [Unknown]
  - Ventricular septal defect [Unknown]
  - Heart disease congenital [Unknown]
  - Shigella infection [Unknown]
  - Hypertension [Unknown]
  - Otitis media [Unknown]
  - Sleep apnoea syndrome [Unknown]
  - Diarrhoea [Unknown]
  - Developmental delay [Unknown]
  - Heart rate abnormal [Unknown]
  - Joint effusion [Unknown]
  - Laevocardia [Unknown]
  - Otitis media chronic [Unknown]
  - Selective eating disorder [Unknown]
  - Hypoaesthesia [Unknown]
  - Enuresis [Unknown]
  - Congenital flat feet [Unknown]
  - Leukopenia [Unknown]
  - Laryngeal stenosis [Unknown]
  - Hypoxia [Unknown]
  - Dyspnoea [Unknown]
  - Eye disorder [Unknown]
  - Depression [Unknown]
  - Paraesthesia [Unknown]
  - Gait disturbance [Unknown]
  - Stridor [Unknown]
  - Cardiac murmur [Unknown]
  - Hypotonia [Unknown]
  - Pneumonia [Unknown]
  - Seizure [Unknown]
  - Squamous cell carcinoma of skin [Unknown]
  - Foetal exposure during pregnancy [Unknown]
  - Jaundice neonatal [Unknown]
  - Sinusitis [Unknown]
  - Incontinence [Unknown]
  - Pulmonary artery stenosis [Unknown]
  - Neutropenia [Unknown]
  - Staphylococcal infection [Unknown]
  - Eustachian tube dysfunction [Unknown]
  - Upper respiratory tract infection [Unknown]
  - Macrocytosis [Unknown]
  - Constipation [Unknown]
  - Coeliac disease [Unknown]
  - Pulmonary hypertension [Unknown]
  - Left ventricular hypertrophy [Unknown]
  - Insomnia [Unknown]
  - Laryngomalacia [Unknown]
  - Aortic valve incompetence [Unknown]
  - Conductive deafness [Unknown]
  - Foreign body in ear [Unknown]
  - Lymphopenia [Unknown]
  - Fatigue [Unknown]
  - Foot deformity [Unknown]
  - Bronchial hyperreactivity [Unknown]
